FAERS Safety Report 7867452-6 (Version None)
Quarter: 2011Q4

REPORT INFORMATION
  Report Type: 
  Country: None (occurrence: None)
  Receive Date: 20111028
  Receipt Date: 20111021
  Transmission Date: 20120403
  Serious: Yes (Other)
  Sender: FDA-Public Use
  Company Number: US-ABBOTT-11P-163-0868355-00

PATIENT
  Sex: Female
  Weight: 86.714 kg

DRUGS (7)
  1. HUMIRA [Suspect]
     Indication: RHEUMATOID ARTHRITIS
     Dates: start: 20100701
  2. ISOSORBIDE DINITRATE [Concomitant]
     Indication: CORONARY ARTERY DISEASE
  3. ATENOLOL [Concomitant]
     Indication: HYPERTENSION
  4. PREDNISONE [Concomitant]
     Indication: RHEUMATOID ARTHRITIS
  5. HYDROCHLOROTHIAZIDE [Concomitant]
     Indication: HYPERTENSION
  6. METFORMIN [Concomitant]
     Indication: DIABETES MELLITUS
  7. LEVOTHYROXINE SODIUM [Concomitant]
     Indication: HYPOTHYROIDISM

REACTIONS (2)
  - MAMMOGRAM ABNORMAL [None]
  - BREAST CANCER [None]
